FAERS Safety Report 6962200-6 (Version None)
Quarter: 2010Q3

REPORT INFORMATION
  Report Type: 
  Country: None (occurrence: None)
  Receive Date: 20100830
  Receipt Date: 20100611
  Transmission Date: 20110219
  Serious: Yes (Disabling)
  Sender: FDA-Public Use
  Company Number: GB-ACCORD-005459

PATIENT
  Age: 73 Year
  Sex: Male
  Weight: 75 kg

DRUGS (7)
  1. MYCOPHENOLATE MOFETIL [Suspect]
     Indication: RHEUMATOID ARTHRITIS
     Dosage: 500.00-MG-3.00PE / ORAL R-1.0DAYS
     Dates: start: 20090121, end: 20100513
  2. ALENDRONIC ACID (ALENDRONIC ACID) [Concomitant]
  3. ASPIRIN [Concomitant]
  4. DOXAZOSIN MESYLATE [Concomitant]
  5. LANSOPRAZOLE [Concomitant]
  6. PREDNISOLONE [Concomitant]
  7. SIMVASTATIN [Concomitant]

REACTIONS (2)
  - IMPAIRED HEALING [None]
  - OFF LABEL USE [None]
